FAERS Safety Report 8152553 (Version 4)
Quarter: 2013Q2

REPORT INFORMATION
  Report Type: Spontaneous
  Country: US (occurrence: US)
  Receive Date: 20110922
  Receipt Date: 20130517
  Transmission Date: 20140414
  Serious: Yes (Other)
  Sender: FDA-Public Use
  Company Number: US-ASTRAZENECA-2011SE12610

PATIENT
  Age: 46 Year
  Sex: Female
  Weight: 87.5 kg

DRUGS (19)
  1. SEROQUEL [Suspect]
     Route: 048
     Dates: start: 19991228
  2. SEROQUEL [Suspect]
     Dosage: 25 MG TAKE 1 TABLET AT BEDTIME FOR 7 DAYS, THEN 2 TABLETS AT BEDTIME FOR 7 DAYS
     Route: 048
     Dates: start: 20010517
  3. SEROQUEL [Suspect]
     Route: 048
     Dates: start: 20010621
  4. SEROQUEL [Suspect]
     Route: 048
     Dates: start: 200909
  5. AMBIEN [Concomitant]
     Dates: start: 20020221
  6. ABILIFY [Concomitant]
     Dates: start: 2009
  7. TOPAMAX [Concomitant]
     Route: 048
     Dates: start: 2009
  8. DEPAKOTE ER [Concomitant]
     Route: 048
     Dates: start: 2009
  9. COGENTIN [Concomitant]
     Indication: EXTRAPYRAMIDAL DISORDER
     Dosage: PRN
     Dates: start: 2009
  10. VALIUM [Concomitant]
     Indication: ANXIETY
     Route: 048
     Dates: start: 2009
  11. VALIUM [Concomitant]
     Indication: CONVULSION
     Route: 048
     Dates: start: 2009
  12. THORAZINE [Concomitant]
     Dosage: 100 MG PO EVERY SIX HOURS PRN
     Route: 048
     Dates: start: 20090920
  13. TRAZODONE [Concomitant]
     Dosage: 50 MG PO QHS PRN
     Route: 048
     Dates: start: 20090920
  14. VISTARIL [Concomitant]
     Dosage: 50 MG PO EVERY 6 HOURS PRN
     Route: 048
     Dates: start: 20090920
  15. TYLENOL [Concomitant]
     Dosage: 650 MG PO EVERY FOUR HOURS PRN
     Route: 048
     Dates: start: 20090920
  16. PHENERGAN [Concomitant]
     Dosage: 12.5 PO EVERY SIX HOURS PRN
     Route: 048
     Dates: start: 20090920
  17. NITAN [Concomitant]
     Route: 048
     Dates: start: 20090921
  18. HALDOL [Concomitant]
     Dates: start: 20090921
  19. RISPERDAL [Concomitant]
     Dates: start: 20090921

REACTIONS (4)
  - Pancreatitis [Unknown]
  - Diabetic coma [Unknown]
  - Type 2 diabetes mellitus [Unknown]
  - Drug hypersensitivity [Unknown]
